FAERS Safety Report 9167856 (Version 1)
Quarter: 2013Q1

REPORT INFORMATION
  Report Type: Spontaneous
  Country: US (occurrence: None)
  Receive Date: 20130304
  Receipt Date: 20130304
  Transmission Date: 20140127
  Serious: Yes (Other)
  Sender: FDA-Public Use
  Company Number: 2013P1002610

PATIENT
  Age: 19 Year
  Sex: Female
  Weight: 50.35 kg

DRUGS (4)
  1. MYORISAN [Suspect]
     Indication: ACNE
     Route: 048
     Dates: start: 20121212, end: 20130116
  2. MYORISAN 40 MG [Suspect]
     Indication: ACNE
     Route: 048
     Dates: start: 20130116, end: 20130211
  3. CLARAVIS [Suspect]
     Indication: ACNE
     Route: 048
     Dates: start: 20130212, end: 20130220
  4. APRI (BIRTH CONTROL PILLS) [Concomitant]

REACTIONS (4)
  - Dry skin [None]
  - Sleep disorder [None]
  - Depression [None]
  - Tachyphrenia [None]
